FAERS Safety Report 6106549-8 (Version None)
Quarter: 2009Q1

REPORT INFORMATION
  Report Type: 
  Country: None (occurrence: None)
  Receive Date: 20090306
  Receipt Date: 20090302
  Transmission Date: 20090719
  Serious: Yes (Hospitalization)
  Sender: FDA-Public Use
  Company Number: DE-MERCK-0903DEU00010

PATIENT
  Age: 67 Year
  Sex: Male

DRUGS (3)
  1. TRUSOPT [Suspect]
     Indication: GLAUCOMA
     Route: 047
     Dates: start: 20070101
  2. LORAZEPAM [Concomitant]
     Route: 048
     Dates: start: 19890101
  3. ATENOLOL [Concomitant]
     Route: 048
     Dates: start: 19890101, end: 20090227

REACTIONS (2)
  - HYPERTENSION [None]
  - PALPITATIONS [None]
